FAERS Safety Report 6394414-0 (Version None)
Quarter: 2009Q4

REPORT INFORMATION
  Report Type: 
  Country: None (occurrence: None)
  Receive Date: 20091008
  Receipt Date: 20091002
  Transmission Date: 20100525
  Serious: Yes (Other)
  Sender: FDA-Public Use
  Company Number: US-BAXTER-2009BH014988

PATIENT
  Age: 22 Year
  Sex: Female

DRUGS (3)
  1. DEXAMETHASONE 0.5MG TAB [Suspect]
     Indication: NEUROMUSCULAR BLOCKING THERAPY
     Route: 050
     Dates: start: 20091001, end: 20091001
  2. NAROPIN [Suspect]
     Indication: LOCAL ANAESTHESIA
     Route: 050
     Dates: start: 20091001, end: 20091001
  3. CARBOCAINE [Suspect]
     Indication: LOCAL ANAESTHESIA
     Route: 050
     Dates: start: 20091001, end: 20091001

REACTIONS (1)
  - GRAND MAL CONVULSION [None]
